FAERS Safety Report 13618773 (Version 1)
Quarter: 2017Q2

REPORT INFORMATION
  Report Type: Spontaneous
  Country: US (occurrence: US)
  Receive Date: 20170606
  Receipt Date: 20170606
  Transmission Date: 20170830
  Serious: Yes (Death)
  Sender: FDA-Public Use
  Company Number: None

PATIENT
  Age: 64 Year
  Sex: Male

DRUGS (16)
  1. OXYCODONE [Concomitant]
     Active Substance: OXYCODONE
  2. CLARITIN [Concomitant]
     Active Substance: LORATADINE
  3. PREDNISONE. [Concomitant]
     Active Substance: PREDNISONE
  4. PROCHLORPER [Concomitant]
  5. PROTEIN POW [Concomitant]
  6. GRANIX [Suspect]
     Active Substance: TBO-FILGRASTIM
     Indication: ADRENAL GLAND CANCER
     Dosage: 480MCG X DAYS AFTER CHEMO, QD X 7 DAYS SC
     Route: 058
  7. MEGESTRIL [Concomitant]
     Active Substance: MEGESTROL
  8. ONDANSETRON [Concomitant]
     Active Substance: ONDANSETRON
  9. MIRALAX [Concomitant]
     Active Substance: POLYETHYLENE GLYCOL 3350
  10. COLACE [Concomitant]
     Active Substance: DOCUSATE SODIUM
  11. MILK OF MAGNESIA [Concomitant]
     Active Substance: MAGNESIUM HYDROXIDE
  12. GRANIX [Suspect]
     Active Substance: TBO-FILGRASTIM
     Indication: MALIGNANT CONNECTIVE TISSUE NEOPLASM
     Dosage: 480MCG X DAYS AFTER CHEMO, QD X 7 DAYS SC
     Route: 058
  13. GRANIX [Suspect]
     Active Substance: TBO-FILGRASTIM
     Indication: HEPATIC CANCER
     Dosage: 480MCG X DAYS AFTER CHEMO, QD X 7 DAYS SC
     Route: 058
  14. OXYCONTIN [Concomitant]
     Active Substance: OXYCODONE HYDROCHLORIDE
  15. MCT OIL [Concomitant]
  16. METOPROLOL. [Concomitant]
     Active Substance: METOPROLOL

REACTIONS (1)
  - Death [None]

NARRATIVE: CASE EVENT DATE: 201706
